FAERS Safety Report 9494881 (Version 1)
Quarter: 2013Q3

REPORT INFORMATION
  Report Type: Report from Study
  Country: US (occurrence: US)
  Receive Date: 20130903
  Receipt Date: 20130903
  Transmission Date: 20140515
  Serious: Yes (Hospitalization)
  Sender: FDA-Public Use
  Company Number: US-ROCHE-1267280

PATIENT
  Age: 55 Year
  Sex: Female
  Weight: 87.08 kg

DRUGS (7)
  1. MYCOPHENOLATE MOFETIL [Suspect]
     Indication: TRANSPLANT REJECTION
     Route: 048
     Dates: start: 20130810
  2. TOFACITINIB CITRATE [Suspect]
     Indication: TRANSPLANT REJECTION
     Route: 048
     Dates: start: 20050811, end: 20121028
  3. PREDNISONE [Suspect]
     Indication: TRANSPLANT REJECTION
     Route: 048
     Dates: start: 20070710
  4. AFEDITAB [Concomitant]
     Indication: HYPERTENSION
     Route: 048
     Dates: start: 20101210
  5. ASPIRIN [Concomitant]
     Indication: PROPHYLAXIS
     Route: 048
     Dates: start: 20121210
  6. CALCITRIOL [Concomitant]
     Indication: HYPOCALCAEMIA
     Route: 048
     Dates: start: 20120720
  7. MACROBID [Concomitant]
     Indication: UROSEPSIS
     Route: 048
     Dates: start: 20120720

REACTIONS (4)
  - Septic shock [Recovered/Resolved]
  - Renal tubular necrosis [Recovered/Resolved]
  - Ileus [Recovered/Resolved]
  - Respiratory distress [Recovered/Resolved]
